FAERS Safety Report 5965729-2 (Version None)
Quarter: 2008Q4

REPORT INFORMATION
  Report Type: 
  Country: None (occurrence: None)
  Receive Date: 20081125
  Receipt Date: 20081117
  Transmission Date: 20090506
  Serious: Yes (Hospitalization)
  Sender: FDA-Public Use
  Company Number: A0758170A

PATIENT
  Age: 57 Year
  Sex: Male
  Weight: 113.6 kg

DRUGS (3)
  1. AVANDIA [Suspect]
     Dosage: 8MG PER DAY
     Route: 065
     Dates: start: 20021010
  2. GLUCOPHAGE [Concomitant]
     Dates: start: 20010531
  3. GLUCOTROL [Concomitant]
     Dates: start: 20020911

REACTIONS (1)
  - MYOCARDIAL INFARCTION [None]
